FAERS Safety Report 7477983-9 (Version None)
Quarter: 2011Q2

REPORT INFORMATION
  Report Type: 
  Country: None (occurrence: None)
  Receive Date: 20110513
  Receipt Date: 20110429
  Transmission Date: 20111010
  Serious: Yes (Other)
  Sender: FDA-Public Use
  Company Number: US-CELGENEUS-163-21880-11030837

PATIENT
  Sex: Female

DRUGS (11)
  1. LORAZEPAM [Concomitant]
     Route: 065
  2. BETHANECHOL [Concomitant]
     Route: 065
  3. PEPCID [Concomitant]
     Route: 065
  4. REVLIMID [Suspect]
     Dosage: 10 MILLIGRAM
     Route: 048
     Dates: start: 20110216, end: 20110219
  5. REVLIMID [Suspect]
     Dosage: 10 MILLIGRAM
     Route: 048
     Dates: start: 20110328, end: 20110401
  6. LEXAPRO [Concomitant]
     Route: 065
  7. AMBIEN [Concomitant]
     Route: 065
  8. WELCHOL [Concomitant]
     Route: 065
  9. PRILOSEC [Concomitant]
     Route: 065
  10. METHADONE HCL [Concomitant]
     Route: 065
  11. TRAMADOL HCL [Concomitant]
     Route: 065

REACTIONS (3)
  - HEPATIC ENCEPHALOPATHY [None]
  - LACERATION [None]
  - FALL [None]
